FAERS Safety Report 25159019 (Version 1)
Quarter: 2025Q2

REPORT INFORMATION
  Report Type: Spontaneous
  Country: US (occurrence: US)
  Receive Date: 20250404
  Receipt Date: 20250404
  Transmission Date: 20250717
  Serious: Yes (Other)
  Sender: LUPIN
  Company Number: US-LUPIN PHARMACEUTICALS INC.-2025-02803

PATIENT
  Age: 43 Year
  Sex: Female

DRUGS (2)
  1. LISINOPRIL [Suspect]
     Active Substance: LISINOPRIL
     Indication: Stress cardiomyopathy
     Route: 065
     Dates: start: 2021, end: 2022
  2. METOPROLOL [Suspect]
     Active Substance: METOPROLOL
     Indication: Stress cardiomyopathy
     Route: 065

REACTIONS (1)
  - Labile blood pressure [Unknown]

NARRATIVE: CASE EVENT DATE: 20220101
